FAERS Safety Report 24067400 (Version 2)
Quarter: 2024Q3

REPORT INFORMATION
  Report Type: Spontaneous
  Country: JP (occurrence: JP)
  Receive Date: 20240709
  Receipt Date: 20240730
  Transmission Date: 20241017
  Serious: Yes (Death, Hospitalization, Other)
  Sender: BRISTOL MYERS SQUIBB
  Company Number: JP-BRISTOL-MYERS SQUIBB COMPANY-2024-107316

PATIENT
  Age: 72 Year

DRUGS (1)
  1. REVLIMID [Suspect]
     Active Substance: LENALIDOMIDE
     Indication: Plasma cell myeloma
     Route: 048
     Dates: end: 202403

REACTIONS (3)
  - Cholangitis [Unknown]
  - Plasma cell myeloma [Unknown]
  - Pancreatitis [Fatal]
